FAERS Safety Report 9499947 (Version 1)
Quarter: 2013Q1

REPORT INFORMATION
  Report Type: Spontaneous
  Country: US (occurrence: None)
  Receive Date: 20130107
  Receipt Date: 20130107
  Transmission Date: 20140127
  Serious: No
  Sender: FDA-Public Use
  Company Number: PHEH2012US023177

PATIENT
  Sex: Female
  Weight: 73 kg

DRUGS (23)
  1. GILENYA (FINGOLIMOD) CAPSULE [Suspect]
     Indication: MULTIPLE SCLEROSIS
     Dosage: 0.5 MG, QD, ORAL
     Route: 048
  2. CELEBREX (CELECOXIB) [Concomitant]
  3. RITALIN (METHYLPHENIDATE HYDROCHLORIDE) [Concomitant]
  4. NASONEX (MOMETASONE FUROATE) [Concomitant]
  5. ALLEGRA [Concomitant]
  6. GABAPENTIN (GABAPENTIN) [Concomitant]
  7. OMEPRAZOLE (OMEPRAZOLE) [Concomitant]
  8. PRIMIDONE (PRIMIDONE ) [Concomitant]
  9. DIAZEPAM (DIAZEPAM) [Concomitant]
  10. SYMBICORT [Concomitant]
  11. ALBUTEROL (SALBUTAMOL) [Concomitant]
  12. OXYCODONE (OXYCODONE) [Concomitant]
  13. LEXAPRO (ESCITALOPRAM OXALATE) [Concomitant]
  14. POTASSIUM (POTASSIUM) [Concomitant]
  15. AMPYRA (FAMPRIDINE) [Concomitant]
  16. FISH OIL (FISH OIL) [Concomitant]
  17. APOVIT CALCIUM (CALCIUM) [Concomitant]
  18. PROAIR (FLUTICASONE PROPIONATE) (FLUTICASONE PROPIONATE) [Concomitant]
  19. OXYCONTIN (OXYCODONE HYDROCHLORIDE) [Concomitant]
  20. MULTI-VIT (VITAMINS NOS) [Concomitant]
  21. HYDROCODONE / IBUPROFEN (HYDROCODONE BITARTRATE, IBUPROFEN) [Concomitant]
  22. SOY ISOFLAVONE (SOYA ISOFLAVONES) [Concomitant]
  23. BLACK COHOSH (CIMICIFUGA RACEMOSA ROOT) [Concomitant]

REACTIONS (4)
  - Hypoaesthesia [None]
  - Visual impairment [None]
  - Memory impairment [None]
  - Paraesthesia [None]
